FAERS Safety Report 12356499 (Version 8)
Quarter: 2019Q3

REPORT INFORMATION
  Report Type: Report from Study
  Country: US (occurrence: US)
  Receive Date: 20160511
  Receipt Date: 20190711
  Transmission Date: 20191004
  Serious: Yes (Other)
  Sender: FDA-Public Use
  Company Number: US-JNJFOC-20160509320

PATIENT
  Age: 85 Year
  Sex: Female

DRUGS (19)
  1. WARFARIN [Suspect]
     Active Substance: WARFARIN
     Indication: PRODUCT USED FOR UNKNOWN INDICATION
  2. FENTANYL. [Concomitant]
     Active Substance: FENTANYL
  3. IMBRUVICA [Suspect]
     Active Substance: IBRUTINIB
     Dosage: 140 MG, QD
     Route: 048
     Dates: start: 20190319
  4. AMLODIPINE [Concomitant]
     Active Substance: AMLODIPINE BESYLATE
  5. POTASSIUM [Concomitant]
     Active Substance: POTASSIUM
  6. CALCIUM CITRATE [Concomitant]
     Active Substance: CALCIUM CITRATE
  7. METOPROLOL. [Concomitant]
     Active Substance: METOPROLOL
  8. MAGNESIUM [Concomitant]
     Active Substance: MAGNESIUM
  9. LIDOCAINE. [Concomitant]
     Active Substance: LIDOCAINE
  10. IMBRUVICA [Suspect]
     Active Substance: IBRUTINIB
     Indication: CHRONIC LYMPHOCYTIC LEUKAEMIA
     Route: 048
     Dates: start: 20150123
  11. NITROFURANTOIN MACROCRYSTALS [Concomitant]
     Active Substance: NITROFURANTOIN
  12. CRANBERRY. [Concomitant]
     Active Substance: CRANBERRY
  13. AMIODARONE [Concomitant]
     Active Substance: AMIODARONE
  14. RANITIDINE HCL [Concomitant]
     Active Substance: RANITIDINE HYDROCHLORIDE
  15. DIOVAN [Concomitant]
     Active Substance: VALSARTAN
  16. CYANOCOBALAMIN. [Concomitant]
     Active Substance: CYANOCOBALAMIN
  17. VITAMIN D NOS [Concomitant]
     Active Substance: VITAMIN D NOS
  18. TYLENOL [Concomitant]
     Active Substance: ACETAMINOPHEN
  19. FUROSEMIDE. [Concomitant]
     Active Substance: FUROSEMIDE

REACTIONS (19)
  - Throat irritation [Unknown]
  - Fall [Unknown]
  - Haemorrhage [Unknown]
  - Rash erythematous [Recovered/Resolved]
  - Vessel perforation [Unknown]
  - Prothrombin time abnormal [Unknown]
  - Ocular hyperaemia [Unknown]
  - Off label use [Not Recovered/Not Resolved]
  - Rhinorrhoea [Unknown]
  - Headache [Unknown]
  - Incorrect dose administered [Not Recovered/Not Resolved]
  - Soft tissue swelling [Unknown]
  - Blood urine present [Unknown]
  - Petechiae [Not Recovered/Not Resolved]
  - Nasopharyngitis [Unknown]
  - Dysphonia [Unknown]
  - Contusion [Unknown]
  - Eye contusion [Unknown]
  - Cellulitis [Unknown]

NARRATIVE: CASE EVENT DATE: 20150123
